FAERS Safety Report 10230600 (Version 2)
Quarter: 2014Q2

REPORT INFORMATION
  Report Type: Spontaneous
  Country: US (occurrence: US)
  Receive Date: 20140611
  Receipt Date: 20140611
  Transmission Date: 20141212
  Serious: No
  Sender: FDA-Public Use
  Company Number: US-INCYTE CORPORATION-2014IN001110

PATIENT
  Age: 68 Year
  Sex: Female
  Weight: 87.62 kg

DRUGS (7)
  1. JAKAFI [Suspect]
     Indication: MYELOFIBROSIS
     Dosage: 15 MG, BID
     Route: 048
     Dates: start: 20130515, end: 20140401
  2. JAKAFI [Suspect]
     Dosage: 15 MG, BID
     Route: 048
     Dates: start: 20140425
  3. SERTRALINE [Concomitant]
     Dosage: 150 MG, QD
  4. LEVOTHYROXINE [Concomitant]
     Dosage: 0.137 MG, QD
  5. SIMVASTATIN [Concomitant]
     Dosage: 40 MG, QD
  6. EVISTA [Concomitant]
     Dosage: 60 MG, QD
  7. OXYBUTYNIN [Concomitant]
     Dosage: 10 MG, QD

REACTIONS (4)
  - Myalgia [Not Recovered/Not Resolved]
  - Drug dose omission [Recovered/Resolved]
  - Arthralgia [Not Recovered/Not Resolved]
  - Neutropenia [Not Recovered/Not Resolved]
